FAERS Safety Report 5720991-6 (Version None)
Quarter: 2008Q2

REPORT INFORMATION
  Report Type: 
  Country: None (occurrence: None)
  Receive Date: 20080424
  Receipt Date: 20080416
  Transmission Date: 20081010
  Serious: Yes (Death)
  Sender: FDA-Public Use
  Company Number: 2008009739

PATIENT
  Age: 5 Month
  Sex: 0

DRUGS (1)
  1. INFANTS' PEDIACARE DECONGESTANT (PSEUDOEPHEDRINE) [Suspect]
     Indication: NASOPHARYNGITIS
     Dosage: ORAL
     Route: 048

REACTIONS (1)
  - GASTROINTESTINAL DISORDER [None]
